FAERS Safety Report 17439060 (Version 1)
Quarter: 2020Q1

REPORT INFORMATION
  Report Type: Spontaneous
  Country: ZA (occurrence: ZA)
  Receive Date: 20200220
  Receipt Date: 20200220
  Transmission Date: 20200409
  Serious: Yes (Other)
  Sender: FDA-Public Use
  Company Number: ZA-SA-2020SA036863

PATIENT
  Age: 29 Year
  Sex: Female

DRUGS (4)
  1. ARAVA [Suspect]
     Active Substance: LEFLUNOMIDE
     Indication: RHEUMATOID ARTHRITIS
     Dosage: 20 MG
     Dates: start: 2016
  2. METHOTREXATE SODIUM. [Concomitant]
     Active Substance: METHOTREXATE SODIUM
     Indication: RHEUMATOID ARTHRITIS
     Dosage: 20 MG
     Dates: start: 2015
  3. ARCOXIA [Concomitant]
     Active Substance: ETORICOXIB
  4. CHLOROQUINE. [Suspect]
     Active Substance: CHLOROQUINE
     Indication: RHEUMATOID ARTHRITIS
     Dosage: 200 MG
     Dates: start: 2015

REACTIONS (5)
  - Impaired work ability [Unknown]
  - Rheumatoid arthritis [Unknown]
  - Leukopenia [Unknown]
  - Nodule [Unknown]
  - Arthropathy [Unknown]

NARRATIVE: CASE EVENT DATE: 2019
